FAERS Safety Report 6880957-X (Version None)
Quarter: 2010Q2

REPORT INFORMATION
  Report Type: 
  Country: None (occurrence: None)
  Receive Date: 20100630
  Receipt Date: 20100224
  Transmission Date: 20101027
  Serious: Yes (Other)
  Sender: FDA-Public Use
  Company Number: 2010024245

PATIENT
  Age: 67 Year
  Sex: Male
  Weight: 95.2 kg

DRUGS (11)
  1. ZITHROMAX [Suspect]
     Indication: VIRAL INFECTION
     Dosage: 250 MG, 2X/DAY; 250 MG, 1X/DAY
     Dates: start: 20100213, end: 20100213
  2. ZITHROMAX [Suspect]
     Indication: VIRAL INFECTION
     Dosage: 250 MG, 2X/DAY; 250 MG, 1X/DAY
     Dates: start: 20100214, end: 20100217
  3. OMEPRAZOLE [Concomitant]
  4. DIOVANE (VALSARTAN) [Concomitant]
  5. ZOCOR [Concomitant]
  6. TOPROL-XL [Concomitant]
  7. NEXIUM [Concomitant]
  8. ASPIRIN [Concomitant]
  9. IMDUR [Concomitant]
  10. . [Concomitant]
  11. CENTRUM SILVER (ASCORBIC ACID, CALCIUM, MINERAL NOS, RETINOL, TOCOPHER [Concomitant]

REACTIONS (1)
  - HEPATIC ENZYME INCREASED [None]
